FAERS Safety Report 4936376-6 (Version None)
Quarter: 2006Q1

REPORT INFORMATION
  Report Type: 
  Country: None (occurrence: None)
  Receive Date: 20060302
  Receipt Date: 20060207
  Transmission Date: 20060701
  Serious: Yes (Hospitalization)
  Sender: FDA-Public Use
  Company Number: US200602001633

PATIENT
  Age: 86 Year
  Sex: Male

DRUGS (6)
  1. FORTEO [Suspect]
     Indication: OSTEOPOROSIS
     Dates: start: 20060101
  2. FORTEO [Concomitant]
  3. ASPIRIN [Concomitant]
  4. ACETAMINOPHEN [Concomitant]
  5. NEURONTIN [Concomitant]
  6. MOBIC [Concomitant]

REACTIONS (5)
  - BACTERIAL INFECTION [None]
  - GASTROINTESTINAL INFECTION [None]
  - INSOMNIA [None]
  - PHARMACEUTICAL PRODUCT COMPLAINT [None]
  - RECTAL HAEMORRHAGE [None]
